FAERS Safety Report 19190561 (Version 1)
Quarter: 2021Q2

REPORT INFORMATION
  Report Type: Spontaneous
  Country: JP (occurrence: JP)
  Receive Date: 20210428
  Receipt Date: 20210428
  Transmission Date: 20210717
  Serious: Yes (Hospitalization, Other)
  Sender: FDA-Public Use
  Company Number: JP-PFIZER INC-2021436502

PATIENT

DRUGS (1)
  1. JZOLOFT [Suspect]
     Active Substance: SERTRALINE HYDROCHLORIDE
     Dosage: UNK

REACTIONS (13)
  - Hallucination, visual [Unknown]
  - Illness [Unknown]
  - Loss of personal independence in daily activities [Unknown]
  - Eczema [Unknown]
  - Cerebral disorder [Unknown]
  - Suicidal ideation [Unknown]
  - Withdrawal syndrome [Unknown]
  - Altered state of consciousness [Unknown]
  - Derealisation [Unknown]
  - Confusional state [Unknown]
  - Contusion [Unknown]
  - Skin exfoliation [Unknown]
  - Speech disorder [Unknown]
